FAERS Safety Report 15061671 (Version 9)
Quarter: 2019Q1

REPORT INFORMATION
  Report Type: Spontaneous
  Country: DE (occurrence: DE)
  Receive Date: 20180625
  Receipt Date: 20190301
  Transmission Date: 20190417
  Serious: Yes (Hospitalization, Other)
  Sender: FDA-Public Use
  Company Number: DE-OTSUKA-2018_016629

PATIENT
  Age: 34 Year
  Sex: Male

DRUGS (23)
  1. ZUCLOPENTHIXOL [Suspect]
     Active Substance: ZUCLOPENTHIXOL
     Indication: PRODUCT USED FOR UNKNOWN INDICATION
     Dosage: 200 MG, QD
     Route: 048
     Dates: start: 20170822, end: 20170910
  2. CLEXANE [Concomitant]
     Active Substance: ENOXAPARIN SODIUM
     Indication: ANTICOAGULANT THERAPY
     Dosage: 0.6 IU, QD
     Route: 058
     Dates: start: 20170809, end: 20171001
  3. ABILIFY [Suspect]
     Active Substance: ARIPIPRAZOLE
     Indication: PRODUCT USED FOR UNKNOWN INDICATION
     Dosage: 30 MG, QD (30 MG, OM, FOR WEEKS)
     Route: 048
     Dates: start: 20170910, end: 20170910
  4. DIAZEPAM. [Suspect]
     Active Substance: DIAZEPAM
     Dosage: 40 MG, QD
     Route: 048
     Dates: start: 20170910
  5. CLOZAPIN [Suspect]
     Active Substance: CLOZAPINE
     Dosage: 50 MG, QD
     Route: 048
     Dates: start: 20170908
  6. ZUCLOPENTHIXOL [Suspect]
     Active Substance: ZUCLOPENTHIXOL
     Dosage: 150 MG, QD
     Route: 048
     Dates: start: 20170821, end: 20170920
  7. LITHIUM APOGEPHA [Concomitant]
     Active Substance: LITHIUM CARBONATE
     Indication: PRODUCT USED FOR UNKNOWN INDICATION
     Dosage: 1350 MG, QD
     Route: 048
     Dates: start: 20170906, end: 20170910
  8. LITHIUM APOGEPHA [Concomitant]
     Active Substance: LITHIUM CARBONATE
     Dosage: 1250 MG, UNK
     Route: 065
  9. AKINETON [Concomitant]
     Active Substance: BIPERIDEN HYDROCHLORIDE
     Indication: PRODUCT USED FOR UNKNOWN INDICATION
     Dosage: 4 MG, QD
     Route: 048
     Dates: start: 20170808, end: 20170910
  10. DIAZEPAM. [Suspect]
     Active Substance: DIAZEPAM
     Dosage: 50 MG, QD
     Route: 048
     Dates: start: 20170826, end: 20170905
  11. DIAZEPAM. [Suspect]
     Active Substance: DIAZEPAM
     Dosage: 55 MG, QD
     Route: 048
     Dates: start: 20170906
  12. OLANZAPINE. [Suspect]
     Active Substance: OLANZAPINE
     Dosage: 20 MG, QD
     Route: 048
     Dates: start: 20170812, end: 20170814
  13. LITHIUM APOGEPHA [Concomitant]
     Active Substance: LITHIUM CARBONATE
     Dosage: 900 MG, QD
     Route: 048
     Dates: start: 20170830, end: 20170905
  14. DIAZEPAM. [Suspect]
     Active Substance: DIAZEPAM
     Dosage: 20 MG, QD
     Route: 048
     Dates: start: 20170803, end: 20170803
  15. OLANZAPINE. [Suspect]
     Active Substance: OLANZAPINE
     Indication: PRODUCT USED FOR UNKNOWN INDICATION
     Dosage: 30 MG, QD
     Route: 048
     Dates: start: 20170815, end: 20170910
  16. DIAZEPAM. [Suspect]
     Active Substance: DIAZEPAM
     Dosage: 40 MG, QD
     Route: 048
     Dates: start: 20170804, end: 20170825
  17. LITHIUM APOGEPHA [Concomitant]
     Active Substance: LITHIUM CARBONATE
     Dosage: 450 MG, QD
     Route: 048
     Dates: start: 20170829
  18. HALOPERIDOL. [Concomitant]
     Active Substance: HALOPERIDOL
     Indication: PRODUCT USED FOR UNKNOWN INDICATION
     Dosage: 3 MG, QD (IN THE EVENING, 0-0-1)
     Route: 065
  19. CLOZAPIN [Suspect]
     Active Substance: CLOZAPINE
     Dosage: 25 MG, QD
     Route: 048
     Dates: start: 20170906, end: 20170907
  20. DIAZEPAM. [Suspect]
     Active Substance: DIAZEPAM
     Indication: PRODUCT USED FOR UNKNOWN INDICATION
     Dosage: 60 MG, QD
     Route: 048
     Dates: start: 20170907, end: 20170909
  21. OLANZAPINE. [Suspect]
     Active Substance: OLANZAPINE
     Dosage: 10 MG, QD
     Route: 048
     Dates: start: 20170810, end: 20170811
  22. CLOZAPIN [Suspect]
     Active Substance: CLOZAPINE
     Indication: PRODUCT USED FOR UNKNOWN INDICATION
     Dosage: 100 MG, QD
     Route: 048
     Dates: start: 20170909
  23. CLOZAPIN [Suspect]
     Active Substance: CLOZAPINE
     Dosage: 150 MG, QD
     Route: 048
     Dates: start: 20170910

REACTIONS (19)
  - Thinking abnormal [Unknown]
  - Psychotic disorder [Unknown]
  - Duodenitis [Unknown]
  - Delusion [Unknown]
  - Salivary hypersecretion [Recovered/Resolved]
  - Tension [Unknown]
  - Pneumonia aspiration [Recovered/Resolved]
  - Lung infiltration [Unknown]
  - Self-injurious ideation [Unknown]
  - Acute respiratory failure [Recovered/Resolved]
  - Pleural effusion [Unknown]
  - Gastritis [Unknown]
  - Respiratory failure [Recovered/Resolved]
  - Psychotic symptom [Unknown]
  - Patient restraint [Unknown]
  - Aggression [Unknown]
  - Aspiration [Unknown]
  - Hyporeflexia [Unknown]
  - Dysphagia [Recovered/Resolved]

NARRATIVE: CASE EVENT DATE: 20170909
